FAERS Safety Report 12922798 (Version 1)
Quarter: 2016Q4

REPORT INFORMATION
  Report Type: Report from Study
  Country: US (occurrence: US)
  Receive Date: 20161109
  Receipt Date: 20161109
  Transmission Date: 20170207
  Serious: Yes (Other)
  Sender: FDA-Public Use
  Company Number: US-BRISTOL-MYERS SQUIBB COMPANY-BMS-2016-088054

PATIENT
  Sex: Female

DRUGS (2)
  1. NIVOLUMAB [Suspect]
     Active Substance: NIVOLUMAB
     Indication: PRODUCT USED FOR UNKNOWN INDICATION
     Dosage: UNK, QWK
     Route: 042
     Dates: start: 20160114
  2. NIVOLUMAB [Suspect]
     Active Substance: NIVOLUMAB
     Indication: LUNG NEOPLASM MALIGNANT
     Dosage: 3 MG/KG, Q2WK
     Route: 042
     Dates: start: 20160112

REACTIONS (16)
  - Abdominal pain upper [Unknown]
  - Faeces hard [Unknown]
  - Rectal haemorrhage [Not Recovered/Not Resolved]
  - Hyperthyroidism [Unknown]
  - Diarrhoea [Unknown]
  - Colitis [Unknown]
  - Eye pain [Recovered/Resolved]
  - Increased appetite [Unknown]
  - Malignant neoplasm progression [Unknown]
  - Pain [Recovered/Resolved]
  - Fatigue [Unknown]
  - Dizziness [Recovered/Resolved]
  - Haematochezia [Unknown]
  - Malaise [Recovered/Resolved]
  - Frequent bowel movements [Unknown]
  - Dyspnoea [Unknown]
